FAERS Safety Report 6248502-X (Version None)
Quarter: 2009Q2

REPORT INFORMATION
  Report Type: 
  Country: None (occurrence: None)
  Receive Date: 20090629
  Receipt Date: 20090618
  Transmission Date: 20091009
  Serious: Yes (Other)
  Sender: FDA-Public Use
  Company Number: US-ROCHE-639932

PATIENT
  Sex: Female

DRUGS (2)
  1. PEG-INTERFERON A-2A (RO 25-8310) [Suspect]
     Indication: HEPATITIS C
     Dosage: GENOTYPE 1A OR 1B, WEEK 30 OF TREATMENT
     Route: 065
     Dates: start: 20081121
  2. RIBASPHERE [Suspect]
     Indication: HEPATITIS C
     Dosage: GENOTYPE 1A OR 1B, WEEK 30 OF TREATMENT
     Route: 065
     Dates: start: 20081121

REACTIONS (4)
  - ARTHRITIS [None]
  - BACK PAIN [None]
  - BENIGN BREAST NEOPLASM [None]
  - BREAST MASS [None]
